FAERS Safety Report 12990504 (Version 1)
Quarter: 2016Q4

REPORT INFORMATION
  Report Type: Spontaneous
  Country: ES (occurrence: ES)
  Receive Date: 20161201
  Receipt Date: 20161201
  Transmission Date: 20170207
  Serious: Yes (Other)
  Sender: FDA-Public Use
  Company Number: ES-JNJFOC-20161129282

PATIENT

DRUGS (1)
  1. DOXORUBICIN [Suspect]
     Active Substance: DOXORUBICIN
     Indication: HEPATIC CANCER
     Dosage: MEDIUM QUANTITY WAS 150MG
     Route: 065

REACTIONS (8)
  - Bacteraemia [Unknown]
  - Cholecystitis [Unknown]
  - Intestinal ischaemia [Unknown]
  - Off label use [Unknown]
  - Splenic infarction [Unknown]
  - Post embolisation syndrome [Unknown]
  - Product use issue [Unknown]
  - Pancreatitis acute [Unknown]
